FAERS Safety Report 8130560-9 (Version None)
Quarter: 2012Q1

REPORT INFORMATION
  Report Type: 
  Country: None (occurrence: None)
  Receive Date: 20120211
  Receipt Date: 20120203
  Transmission Date: 20120608
  Serious: Yes (Other)
  Sender: FDA-Public Use
  Company Number: PHHY2012IT009870

PATIENT
  Sex: Male

DRUGS (2)
  1. CARBOPLATIN [Suspect]
  2. GEMCITABINE [Suspect]

REACTIONS (1)
  - SUPRAVENTRICULAR TACHYCARDIA [None]
